FAERS Safety Report 18774464 (Version 1)
Quarter: 2021Q1

REPORT INFORMATION
  Report Type: Spontaneous
  Country: CN (occurrence: CN)
  Receive Date: 20210122
  Receipt Date: 20210122
  Transmission Date: 20210419
  Serious: Yes (Other)
  Sender: FDA-Public Use
  Company Number: CN-PFIZER INC-2021036386

PATIENT
  Age: 51 Year
  Sex: Male
  Weight: 65 kg

DRUGS (2)
  1. DICLOFENAC SODIUM. [Concomitant]
     Active Substance: DICLOFENAC SODIUM
     Indication: TENOSYNOVITIS
     Dosage: 1 DF, 1X/DAY
     Route: 061
     Dates: start: 20201230, end: 20210101
  2. CELECOXIB. [Suspect]
     Active Substance: CELECOXIB
     Indication: TENOSYNOVITIS
     Dosage: 0.2 G, 2X/DAY (6 CAPSULES/BOX)
     Route: 048
     Dates: start: 20201230, end: 20210101

REACTIONS (5)
  - Papule [Unknown]
  - Pruritus [Unknown]
  - Dermatitis allergic [Unknown]
  - Erythema [Unknown]
  - Swelling [Unknown]

NARRATIVE: CASE EVENT DATE: 20210101
